FAERS Safety Report 18727183 (Version 6)
Quarter: 2021Q2

REPORT INFORMATION
  Report Type: Report from Study
  Country: None (occurrence: NL)
  Receive Date: 20210112
  Receipt Date: 20210408
  Transmission Date: 20210717
  Serious: Yes (Hospitalization)
  Sender: FDA-Public Use
  Company Number: NL-ABBVIE-21K-114-3721224-00

PATIENT
  Sex: Female

DRUGS (8)
  1. LEVODOPA BENSERAZIDE [Concomitant]
     Active Substance: BENSERAZIDE\LEVODOPA
     Route: 048
  2. LEVODOPA BENSERAZIDE [Concomitant]
     Active Substance: BENSERAZIDE\LEVODOPA
     Indication: PARKINSON^S DISEASE
     Dosage: LEVODOPA BENSERAZIDE MGA.?FREQUENCY TEXT: 2?1?1?1
     Route: 048
     Dates: start: 201502
  3. LEVODOPA BENSERAZIDE [Concomitant]
     Active Substance: BENSERAZIDE\LEVODOPA
     Route: 048
  4. ROPINIROLE. [Concomitant]
     Active Substance: ROPINIROLE
     Indication: PARKINSON^S DISEASE
     Route: 048
     Dates: start: 201602
  5. DUODOPA [Suspect]
     Active Substance: CARBIDOPA\LEVODOPA
     Indication: PARKINSON^S DISEASE
     Dosage: MD: 13.0 ML, CD: 1.9 ML/HR, ED: 3.0 ML
     Route: 050
     Dates: start: 20200224
  6. DUODOPA [Suspect]
     Active Substance: CARBIDOPA\LEVODOPA
     Dosage: MD: 10.5 ML, CD: 1.9 ML/H, ED: 4.0 ML
     Route: 050
  7. DUODOPA [Suspect]
     Active Substance: CARBIDOPA\LEVODOPA
     Dosage: MD 11.0 ML; CD 1.9 ML/H; ED 4.0 ML
     Route: 050
  8. OMEPRAZOL [Concomitant]
     Active Substance: OMEPRAZOLE
     Indication: GASTRIC DISORDER
     Route: 048
     Dates: start: 201502

REACTIONS (12)
  - Device leakage [Unknown]
  - Gastrointestinal tube insertion [Unknown]
  - Stoma site reaction [Recovered/Resolved]
  - Medical device site injury [Recovered/Resolved]
  - Stoma site pain [Recovered/Resolved]
  - Abdominal pain [Recovered/Resolved]
  - Dyskinesia [Unknown]
  - Device issue [Not Recovered/Not Resolved]
  - Stoma complication [Recovering/Resolving]
  - Impaired quality of life [Unknown]
  - Fear [Unknown]
  - Medical device site fibrosis [Unknown]

NARRATIVE: CASE EVENT DATE: 2021
